FAERS Safety Report 24083413 (Version 1)
Quarter: 2024Q3

REPORT INFORMATION
  Report Type: Spontaneous
  Country: ES (occurrence: ES)
  Receive Date: 20240712
  Receipt Date: 20240712
  Transmission Date: 20241017
  Serious: Yes (Other)
  Sender: STRIDES
  Company Number: ES-STRIDES ARCOLAB LIMITED-2024SP008368

PATIENT

DRUGS (2)
  1. EMTRICITABINE\TENOFOVIR DISOPROXIL [Suspect]
     Active Substance: EMTRICITABINE\TENOFOVIR DISOPROXIL
     Indication: Prophylaxis against HIV infection
     Dosage: UNK, QD, RECEIVED EMTRICITABINE/TENOFOVIR-DISOPROXIL-FUMARATE DAILY FOR 28?DAYS
     Route: 065
  2. RALTEGRAVIR [Suspect]
     Active Substance: RALTEGRAVIR
     Indication: Prophylaxis against HIV infection
     Dosage: 1200 MILLIGRAM
     Route: 065

REACTIONS (1)
  - Drug ineffective [Unknown]
